FAERS Safety Report 8921550 (Version 2)
Quarter: 2013Q3

REPORT INFORMATION
  Report Type: Spontaneous
  Country: US (occurrence: US)
  Receive Date: 20121122
  Receipt Date: 20130731
  Transmission Date: 20140515
  Serious: No
  Sender: FDA-Public Use
  Company Number: US-BIOGENIDEC-2012BI052824

PATIENT
  Sex: Female

DRUGS (1)
  1. TYSABRI [Suspect]
     Indication: MULTIPLE SCLEROSIS
     Route: 042
     Dates: start: 20120723, end: 20130508

REACTIONS (10)
  - Sneezing [Unknown]
  - Agitation [Recovered/Resolved]
  - Tinea pedis [Not Recovered/Not Resolved]
  - Localised infection [Unknown]
  - Pain in extremity [Recovered/Resolved]
  - Flushing [Unknown]
  - Fatigue [Unknown]
  - Rash generalised [Recovered/Resolved]
  - Nasopharyngitis [Not Recovered/Not Resolved]
  - Oropharyngeal pain [Not Recovered/Not Resolved]
